FAERS Safety Report 18817669 (Version 2)
Quarter: 2021Q2

REPORT INFORMATION
  Report Type: Spontaneous
  Country: BG (occurrence: BG)
  Receive Date: 20210201
  Receipt Date: 20210414
  Transmission Date: 20210717
  Serious: Yes (Other)
  Sender: FDA-Public Use
  Company Number: BG-ASTRAZENECA-2021A013016

PATIENT
  Age: 678 Month
  Sex: Male

DRUGS (5)
  1. PRESTARIUM [Concomitant]
     Active Substance: PERINDOPRIL
  2. CONCOR [Concomitant]
     Active Substance: BISOPROLOL FUMARATE
  3. ROSUVASTATIN. [Concomitant]
     Active Substance: ROSUVASTATIN
  4. ASPIRIN. [Concomitant]
     Active Substance: ASPIRIN
  5. BRILIQUE [Suspect]
     Active Substance: TICAGRELOR
     Indication: MYOCARDIAL INFARCTION
     Route: 048
     Dates: start: 20180505

REACTIONS (4)
  - Heart rate increased [Unknown]
  - Hypertensive crisis [Recovered/Resolved]
  - Epistaxis [Unknown]
  - COVID-19 [Recovered/Resolved]

NARRATIVE: CASE EVENT DATE: 202012
